FAERS Safety Report 7948702-4 (Version None)
Quarter: 2011Q4

REPORT INFORMATION
  Report Type: 
  Country: None (occurrence: None)
  Receive Date: 20111130
  Receipt Date: 20111130
  Transmission Date: 20120403
  Serious: Yes (Life-Threatening)
  Sender: FDA-Public Use
  Company Number: None

PATIENT
  Age: 57 Year
  Sex: Male
  Weight: 88.45 kg

DRUGS (2)
  1. IBUPROFEN (ADVIL) [Concomitant]
     Indication: HEADACHE
  2. ZOLPIDEM [Suspect]
     Indication: SLEEP DISORDER THERAPY

REACTIONS (5)
  - FEELING ABNORMAL [None]
  - WRONG TECHNIQUE IN DRUG USAGE PROCESS [None]
  - MIDDLE INSOMNIA [None]
  - TREMOR [None]
  - HYPERHIDROSIS [None]
